FAERS Safety Report 5795180-X (Version None)
Quarter: 2008Q2

REPORT INFORMATION
  Report Type: 
  Country: None (occurrence: None)
  Receive Date: 20080626
  Receipt Date: 20080616
  Transmission Date: 20081010
  Serious: Yes (Hospitalization)
  Sender: FDA-Public Use
  Company Number: 2008SP007981

PATIENT
  Age: 61 Year
  Sex: Male

DRUGS (8)
  1. IMDUR [Suspect]
     Indication: CORONARY ARTERY DISEASE
     Dosage: 60 MG; ; PO, 30 MG; ; PO
     Route: 048
     Dates: start: 20080402, end: 20080404
  2. IMDUR [Suspect]
     Indication: CORONARY ARTERY DISEASE
     Dosage: 60 MG; ; PO, 30 MG; ; PO
     Route: 048
     Dates: start: 20080405, end: 20080413
  3. ASPIRIN [Suspect]
     Indication: ANTIPLATELET THERAPY
     Dosage: 0.25 DF; PO
     Route: 048
     Dates: start: 20080324, end: 20080409
  4. PLAVIX [Suspect]
     Indication: ANTIPLATELET THERAPY
     Dosage: 75 MG; ; PO
     Route: 048
     Dates: start: 20080402, end: 20080404
  5. INSULIN (INSULIN) [Suspect]
     Indication: DRUG USE FOR UNKNOWN INDICATION
  6. SHUXUETONG (ALL OTHER THERAPEUTIC PRODUCTS) [Suspect]
     Indication: COAGULOPATHY
  7. SALVIA MILTIORRHIZA ROOT (SALVIA MILTIORRHIZA ROOT) [Suspect]
     Indication: CORONARY ARTERY DISEASE
  8. LIPITOR [Suspect]
     Indication: HYPERLIPIDAEMIA

REACTIONS (1)
  - HAEMORRHAGIC CEREBRAL INFARCTION [None]
